FAERS Safety Report 7611833-2 (Version None)
Quarter: 2011Q3

REPORT INFORMATION
  Report Type: 
  Country: None (occurrence: None)
  Receive Date: 20110715
  Receipt Date: 20110708
  Transmission Date: 20111222
  Serious: Yes (Hospitalization)
  Sender: FDA-Public Use
  Company Number: US-PFIZER INC-US-WYE-H17403710

PATIENT
  Sex: Male
  Weight: 95.238 kg

DRUGS (16)
  1. AMBIEN [Concomitant]
     Indication: INSOMNIA
     Dosage: 10 MG, 1X/DAY
     Route: 048
     Dates: start: 20060101
  2. WELLBUTRIN [Concomitant]
     Route: 065
  3. CELEXA [Concomitant]
     Indication: DEPRESSION
     Dosage: 40 MG, 1X/DAY
     Route: 048
  4. ALTACE [Concomitant]
     Indication: HYPERTENSION
     Dosage: 2.5 MG, 1X/DAY
     Route: 048
     Dates: start: 20100701
  5. RISPERDAL [Concomitant]
     Indication: BIPOLAR DISORDER
     Dosage: 3 MG, 1X/DAY
     Route: 048
     Dates: start: 20000101
  6. CORDARONE [Suspect]
     Indication: VENTRICULAR TACHYCARDIA
     Dosage: 200.0 MG, 2X/DAY
     Route: 048
     Dates: start: 20100409, end: 20100721
  7. ASPIRIN [Concomitant]
     Indication: PROPHYLAXIS
     Dosage: 325 MG, 1X/DAY
     Route: 048
     Dates: start: 20010101
  8. ALDACTONE [Concomitant]
     Indication: CARDIAC FAILURE CONGESTIVE
     Dosage: 25 MG, 1X/DAY
     Route: 048
     Dates: start: 20060101
  9. BLINDED SD-6010 [Suspect]
     Indication: OSTEOARTHRITIS
     Dosage: 2 DAILY
     Route: 048
     Dates: start: 20081001
  10. CORDARONE [Suspect]
     Dosage: 400.0 MG, 2X/DAY
     Route: 048
     Dates: start: 20100401, end: 20100721
  11. LOVAZA [Concomitant]
     Indication: MEDICAL DIET
     Dosage: UNK
     Route: 048
     Dates: start: 20010101
  12. ZOCOR [Concomitant]
     Indication: HYPERLIPIDAEMIA
     Dosage: 80 MG, 1X/DAY
     Route: 048
     Dates: start: 20081105, end: 20100721
  13. VOLTAREN [Concomitant]
     Indication: OSTEOARTHRITIS
     Dosage: 75 MG, AS NEEDED
     Route: 048
  14. LOPRESSOR [Concomitant]
     Indication: HYPERTENSION
     Dosage: 25 MG, 4X/DAY
     Route: 048
     Dates: start: 20100701
  15. BLINDED NO SUBJECT DRUG [Suspect]
     Indication: OSTEOARTHRITIS
     Dosage: 2 DAILY
     Route: 048
     Dates: start: 20081001
  16. PLACEBO [Suspect]
     Indication: OSTEOARTHRITIS
     Dosage: 2 DAILY
     Route: 048
     Dates: start: 20081001

REACTIONS (4)
  - URINARY TRACT INFECTION [None]
  - FATIGUE [None]
  - RHABDOMYOLYSIS [None]
  - DEHYDRATION [None]
